FAERS Safety Report 7982022-7 (Version None)
Quarter: 2011Q4

REPORT INFORMATION
  Report Type: 
  Country: None (occurrence: None)
  Receive Date: 20111213
  Receipt Date: 20111128
  Transmission Date: 20120403
  Serious: Yes (Hospitalization, Other)
  Sender: FDA-Public Use
  Company Number: US-2011-10376

PATIENT
  Age: 60 Year
  Sex: Female

DRUGS (4)
  1. CYCLOPHOSPHAMIDE (CYCLOPHOSPHAMIDE) 05/10/2011 TO 05/11/2011 [Concomitant]
  2. BUSULFAN [Suspect]
     Indication: STEM CELL TRANSPLANT
     Dosage: 46 MG MILLIGRAM(S), DAILY DOSE, INTRAVENOUS 194 MG MILLIGRAM(S), DAILY DOSE, INTRAVENOUS
     Route: 042
     Dates: start: 20110502, end: 20110502
  3. BUSULFAN [Suspect]
     Indication: STEM CELL TRANSPLANT
     Dosage: 46 MG MILLIGRAM(S), DAILY DOSE, INTRAVENOUS 194 MG MILLIGRAM(S), DAILY DOSE, INTRAVENOUS
     Route: 042
     Dates: start: 20110505, end: 20110508
  4. ETOPOSIDE (ETOPOSIDE) 05/09/2011 TO 05/09/2011 [Concomitant]

REACTIONS (13)
  - DEHYDRATION [None]
  - HYPOPHAGIA [None]
  - DIARRHOEA [None]
  - ERYTHEMA [None]
  - FATIGUE [None]
  - TOXICITY TO VARIOUS AGENTS [None]
  - EXFOLIATIVE RASH [None]
  - PAIN OF SKIN [None]
  - VOMITING [None]
  - NAUSEA [None]
  - SKIN TOXICITY [None]
  - HYPOTENSION [None]
  - ACUTE GRAFT VERSUS HOST DISEASE [None]
